FAERS Safety Report 19777601 (Version 2)
Quarter: 2025Q2

REPORT INFORMATION
  Report Type: Spontaneous
  Country: US (occurrence: US)
  Receive Date: 20210902
  Receipt Date: 20250627
  Transmission Date: 20250717
  Serious: No
  Sender: ELI LILLY AND COMPANY
  Company Number: US-ELI_LILLY_AND_COMPANY-US202109000205

PATIENT

DRUGS (4)
  1. TRULICITY [Suspect]
     Active Substance: DULAGLUTIDE
     Indication: Product used for unknown indication
     Route: 065
     Dates: start: 2020
  2. TRULICITY [Suspect]
     Active Substance: DULAGLUTIDE
     Indication: Product used for unknown indication
     Route: 065
     Dates: start: 2020
  3. TRULICITY [Suspect]
     Active Substance: DULAGLUTIDE
     Route: 065
  4. TRULICITY [Suspect]
     Active Substance: DULAGLUTIDE
     Route: 065

REACTIONS (2)
  - Glycosylated haemoglobin increased [Unknown]
  - Drug ineffective [Unknown]
